FAERS Safety Report 20818497 (Version 1)
Quarter: 2022Q2

REPORT INFORMATION
  Report Type: Spontaneous
  Country: US (occurrence: US)
  Receive Date: 20220512
  Receipt Date: 20220512
  Transmission Date: 20220721
  Serious: No
  Sender: FDA-Public Use
  Company Number: US-PFIZER INC-202200009811

PATIENT
  Sex: Male

DRUGS (3)
  1. XANAX [Suspect]
     Active Substance: ALPRAZOLAM
     Dosage: 2MG BID
  2. XANAX [Suspect]
     Active Substance: ALPRAZOLAM
     Dosage: 1MG BID
  3. XANAX [Suspect]
     Active Substance: ALPRAZOLAM
     Dosage: 0.2MG BID
     Route: 048

REACTIONS (4)
  - Panic attack [Unknown]
  - Drug ineffective [Unknown]
  - Fatigue [Unknown]
  - Pain [Unknown]
